FAERS Safety Report 8049310-X (Version None)
Quarter: 2012Q1

REPORT INFORMATION
  Report Type: 
  Country: None (occurrence: None)
  Receive Date: 20120117
  Receipt Date: 20120109
  Transmission Date: 20120608
  Serious: Yes (Hospitalization)
  Sender: FDA-Public Use
  Company Number: FR-B.I. PHARMACEUTICALS,INC./RIDGEFIELD-2012-FF-00031FF

PATIENT
  Sex: Female

DRUGS (5)
  1. ZOLPIDEM [Concomitant]
  2. TRANSIPEG [Concomitant]
  3. MICARDIS [Suspect]
     Dosage: 40 MG
     Route: 048
     Dates: end: 20111102
  4. PRAVASTATIN SODIUM [Concomitant]
  5. SPIRIVA [Concomitant]

REACTIONS (8)
  - SPEECH DISORDER [None]
  - CEREBRAL ATROPHY [None]
  - MALAISE [None]
  - CONFUSIONAL STATE [None]
  - AMNESIA [None]
  - LEUKOENCEPHALOPATHY [None]
  - HYPONATRAEMIA [None]
  - VOMITING [None]
